FAERS Safety Report 9687912 (Version 1)
Quarter: 2013Q4

REPORT INFORMATION
  Report Type: Spontaneous
  Country: US (occurrence: US)
  Receive Date: 20131114
  Receipt Date: 20131114
  Transmission Date: 20140711
  Serious: Yes (Hospitalization)
  Sender: FDA-Public Use
  Company Number: US-BAYER-2013-138153

PATIENT
  Age: 29 Year
  Sex: Female
  Weight: 63.05 kg

DRUGS (2)
  1. YAZ [Suspect]
  2. PERCOCET [Concomitant]
     Dosage: 5-325 MG 1 EVERY 4 HOURS AS NEEDED BY MOUTH
     Route: 048

REACTIONS (1)
  - Deep vein thrombosis [None]
